FAERS Safety Report 9931991 (Version 1)
Quarter: 2014Q1

REPORT INFORMATION
  Report Type: Spontaneous
  Country: US (occurrence: None)
  Receive Date: 20140227
  Receipt Date: 20140227
  Transmission Date: 20141002
  Serious: Yes (Disabling)
  Sender: FDA-Public Use
  Company Number: None

PATIENT
  Age: 73 Year
  Sex: Female
  Weight: 78.93 kg

DRUGS (16)
  1. NITROFURANTOIN MONOHYDRATE [Suspect]
     Indication: URINARY TRACT INFECTION
     Route: 048
     Dates: start: 20140128, end: 20140130
  2. SIMVASTATIN [Concomitant]
  3. PREDNISONE [Concomitant]
  4. ATENOLOL [Concomitant]
  5. LEVOTHROXIN [Concomitant]
  6. ASPIRIN [Concomitant]
  7. VIT E [Concomitant]
  8. CO Q10 [Concomitant]
  9. POTASSIUM [Concomitant]
  10. CALCIUM COMPLETE [Concomitant]
  11. AMINO [Concomitant]
  12. VIT D [Concomitant]
  13. CINNAMON [Concomitant]
  14. CRANBERRY [Concomitant]
  15. MAGNESIUM [Concomitant]
  16. GINGER [Concomitant]

REACTIONS (4)
  - Local swelling [None]
  - Pain in extremity [None]
  - Arthralgia [None]
  - Joint swelling [None]
